FAERS Safety Report 7418812-9 (Version None)
Quarter: 2011Q2

REPORT INFORMATION
  Report Type: 
  Country: None (occurrence: None)
  Receive Date: 20110408
  Receipt Date: 20110331
  Transmission Date: 20111010
  Serious: Yes (Other)
  Sender: FDA-Public Use
  Company Number: AUSAB-11-0267

PATIENT
  Age: 58 Year
  Sex: Female

DRUGS (5)
  1. DEXAMETHASONE [Concomitant]
  2. PALONOSETRON [Concomitant]
  3. ABRAXANE [Suspect]
     Indication: BREAST CANCER
     Dosage: (250 MG/M2)
     Dates: start: 20110301
  4. ZOMETA [Concomitant]
  5. PROCHLORPERAZINE MALEATE [Concomitant]

REACTIONS (1)
  - CELLULITIS [None]
